FAERS Safety Report 23126958 (Version 1)
Quarter: 2023Q4

REPORT INFORMATION
  Report Type: Spontaneous
  Country: ES (occurrence: ES)
  Receive Date: 20231030
  Receipt Date: 20231030
  Transmission Date: 20240109
  Serious: Yes (Other)
  Sender: FDA-Public Use
  Company Number: ES-SAMSUNG BIOEPIS-SB-2023-28086

PATIENT
  Age: 66 Year
  Sex: Male

DRUGS (4)
  1. ADALIMUMAB [Suspect]
     Active Substance: ADALIMUMAB\ISOPROPYL ALCOHOL
     Indication: Chorioretinitis
     Route: 058
  2. ADALIMUMAB [Suspect]
     Active Substance: ADALIMUMAB\ISOPROPYL ALCOHOL
     Indication: Cystoid macular oedema
     Route: 058
  3. CEFTRIAXONE [Concomitant]
     Active Substance: CEFTRIAXONE\CEFTRIAXONE SODIUM
     Indication: Cystoid macular oedema
     Dosage: UNKNOWN
     Route: 065
  4. DOXYCYCLINE [Concomitant]
     Active Substance: DOXYCYCLINE
     Indication: Cystoid macular oedema
     Dosage: UNKNOWN
     Route: 048

REACTIONS (4)
  - Ocular lymphoma [Recovered/Resolved]
  - Cataract [Unknown]
  - Drug ineffective for unapproved indication [Unknown]
  - Off label use [Unknown]
